FAERS Safety Report 14603002 (Version 1)
Quarter: 2018Q1

REPORT INFORMATION
  Report Type: Spontaneous
  Country: FR (occurrence: FR)
  Receive Date: 20180306
  Receipt Date: 20180306
  Transmission Date: 20180509
  Serious: Yes (Hospitalization)
  Sender: FDA-Public Use
  Company Number: FR-ASTRAZENECA-2018SE24792

PATIENT
  Age: 72 Year
  Sex: Female

DRUGS (4)
  1. OLAPARIB. [Suspect]
     Active Substance: OLAPARIB
     Indication: OVARIAN CANCER
     Dosage: DAILY, MOST RECENT DOSE ADMINISTERED ON 30-OCT-2017 ON 14-NOV-2017, THERAPY WITH OLAPARIB WAS RES...
     Route: 048
     Dates: start: 20170331
  2. AVASTIN [Suspect]
     Active Substance: BEVACIZUMAB
     Indication: OVARIAN CANCER
     Dosage: 15 MG/KG, MOST RECENT DOSE ADMINISTERED ON 10-OCT-2017 ON 14-NOV-2017, THERAPY WITH BEVACIZUMAB W...
     Route: 042
     Dates: start: 20170331
  3. CIPLOX [Concomitant]
     Active Substance: CIPROFLOXACIN HYDROCHLORIDE
     Route: 048
  4. PARACETAMOL [Concomitant]
     Active Substance: ACETAMINOPHEN
     Route: 048

REACTIONS (1)
  - Pyelonephritis acute [Recovered/Resolved]

NARRATIVE: CASE EVENT DATE: 20171102
